FAERS Safety Report 9452824 (Version 1)
Quarter: 2013Q3

REPORT INFORMATION
  Report Type: Report from Study
  Country: BR (occurrence: BR)
  Receive Date: 20130812
  Receipt Date: 20130812
  Transmission Date: 20140515
  Serious: Yes (Life-Threatening, Other)
  Sender: FDA-Public Use
  Company Number: PHHY2013BR085804

PATIENT
  Age: 73 Year
  Sex: Female
  Weight: 64 kg

DRUGS (1)
  1. DIOVAN TRIPLE [Suspect]
     Indication: HYPERTENSION
     Dosage: 1 DF (160/5/12.5MG), DAILY (IN THE MORNING OR AT NIGHT)
     Route: 048

REACTIONS (3)
  - Fatigue [Recovered/Resolved]
  - Venous occlusion [Recovered/Resolved]
  - Headache [Recovered/Resolved]
